FAERS Safety Report 7312236-0 (Version None)
Quarter: 2011Q1

REPORT INFORMATION
  Report Type: 
  Country: None (occurrence: None)
  Receive Date: 20110224
  Receipt Date: 20110216
  Transmission Date: 20110831
  Serious: Yes (Hospitalization)
  Sender: FDA-Public Use
  Company Number: A0907541B

PATIENT
  Sex: Female
  Weight: 40.7 kg

DRUGS (6)
  1. LAPATINIB [Suspect]
     Indication: BREAST CANCER
     Dosage: 1250MG PER DAY
     Route: 048
  2. HYDROCHLOROTHIAZIDE [Concomitant]
     Dosage: 25MG PER DAY
     Dates: start: 20101201
  3. WARFARIN SODIUM [Suspect]
     Indication: DEEP VEIN THROMBOSIS
  4. OMEPRAZOLE [Concomitant]
     Dosage: 20MG PER DAY
     Route: 048
     Dates: start: 20110117
  5. GEMCITABINE [Suspect]
     Indication: BREAST CANCER
     Dosage: 1000MGM2 CYCLIC
     Route: 042
  6. METILDOPA [Concomitant]
     Dosage: 250MG THREE TIMES PER DAY
     Dates: start: 20101201

REACTIONS (1)
  - INTERNATIONAL NORMALISED RATIO INCREASED [None]
